FAERS Safety Report 11346039 (Version 1)
Quarter: 2015Q3

REPORT INFORMATION
  Report Type: Spontaneous
  Country: US (occurrence: US)
  Receive Date: 20150803
  Receipt Date: 20150803
  Transmission Date: 20151125
  Serious: No
  Sender: FDA-Public Use
  Company Number: US-ELI_LILLY_AND_COMPANY-US200912004532

PATIENT
  Sex: Male

DRUGS (9)
  1. STRATTERA [Suspect]
     Active Substance: ATOMOXETINE HYDROCHLORIDE
     Dosage: 40 MG, 2/D
     Route: 065
  2. ULTRAM [Concomitant]
     Active Substance: TRAMADOL HYDROCHLORIDE
  3. VICODIN [Concomitant]
     Active Substance: ACETAMINOPHEN\HYDROCODONE BITARTRATE
  4. CARISOPRODOL. [Concomitant]
     Active Substance: CARISOPRODOL
  5. AVODART [Concomitant]
     Active Substance: DUTASTERIDE
  6. STRATTERA [Suspect]
     Active Substance: ATOMOXETINE HYDROCHLORIDE
     Indication: ATTENTION DEFICIT/HYPERACTIVITY DISORDER
     Dosage: 80 MG, DAILY (1/D)
     Route: 065
     Dates: start: 200812
  7. STRATTERA [Suspect]
     Active Substance: ATOMOXETINE HYDROCHLORIDE
     Dosage: 100 MG, DAILY (1/D)
     Route: 065
     Dates: start: 20091204
  8. KLOR-CON [Concomitant]
     Active Substance: POTASSIUM CHLORIDE
  9. STRATTERA [Suspect]
     Active Substance: ATOMOXETINE HYDROCHLORIDE
     Dosage: 80 MG, DAILY (1/D)
     Route: 065

REACTIONS (2)
  - Penile discharge [Not Recovered/Not Resolved]
  - Testicular pain [Not Recovered/Not Resolved]
